FAERS Safety Report 8338597 (Version 6)
Quarter: 2013Q4

REPORT INFORMATION
  Report Type: Spontaneous
  Country: US (occurrence: US)
  Receive Date: 20120117
  Receipt Date: 20131122
  Transmission Date: 20140711
  Serious: No
  Sender: FDA-Public Use
  Company Number: US-PFIZER INC-2012010559

PATIENT
  Age: 37 Year
  Sex: Male
  Weight: 71.2 kg

DRUGS (9)
  1. NICOTROL NASAL SPRAY [Suspect]
     Indication: SMOKING CESSATION THERAPY
     Dosage: 10 MG/ML, 15-20 TIMES A DAY
     Route: 045
     Dates: start: 201111, end: 201112
  2. NICOTROL NASAL SPRAY [Suspect]
     Dosage: 10 MG/ML, TWO SPRAYS EVERY HOUR AS NEEDED
     Route: 045
     Dates: start: 20120123
  3. NICOTROL NASAL SPRAY [Suspect]
     Dosage: 4 MG/ACTUATION, 1-2 SPRAYS EVERY HOUR AS NEEDED
     Route: 045
  4. GABAPENTIN [Concomitant]
     Indication: SLEEP DISORDER
     Dosage: 600 MG, 3X/DAY
     Route: 048
  5. REMERON [Concomitant]
     Indication: SLEEP DISORDER
     Dosage: 30 MG, 1X/DAY (EVERY NIGHT AT BED TIME)
     Route: 048
  6. AMOXICILLIN [Concomitant]
     Dosage: 500 MG, 3X/DAY
     Route: 048
     Dates: end: 20130629
  7. ATIVAN [Concomitant]
     Dosage: 0.5 MG, 2X/DAY (AS NEEDED)
     Route: 048
     Dates: end: 20131006
  8. AZITHROMYCIN [Concomitant]
     Dosage: (500 MG, TAKE 2 TABLETS EVERY DAY BY ORAL ROUTE FOR 1 DAY)
     Route: 048
     Dates: start: 20130222, end: 20130222
  9. TYLENOL [Concomitant]
     Dosage: UNK, AS NEEDED

REACTIONS (3)
  - Throat irritation [Recovered/Resolved]
  - Drug ineffective [Unknown]
  - Drug dispensing error [Unknown]
